FAERS Safety Report 17890065 (Version 3)
Quarter: 2020Q3

REPORT INFORMATION
  Report Type: Spontaneous
  Country: JP (occurrence: JP)
  Receive Date: 20200612
  Receipt Date: 20200720
  Transmission Date: 20201103
  Serious: Yes (Other)
  Sender: FDA-Public Use
  Company Number: JP-PFIZER INC-2020226202

PATIENT
  Age: 80 Year
  Sex: Female

DRUGS (8)
  1. CELECOX [Suspect]
     Active Substance: CELECOXIB
     Indication: ADVERSE EVENT
  2. GASTER [Concomitant]
     Active Substance: FAMOTIDINE
     Indication: ADVERSE EVENT
     Dosage: 10 MG, 2X/DAY
     Route: 048
     Dates: start: 20200529, end: 20200605
  3. LIDOCAINE. [Concomitant]
     Active Substance: LIDOCAINE
     Indication: PAIN
     Dosage: 3 ML, 1X/DAY, SUBCUTANUOUS OR INTRA?ARTICULAR
     Dates: start: 20200529, end: 20200605
  4. MUCOSTA [Concomitant]
     Active Substance: REBAMIPIDE
     Dosage: UNK
     Route: 048
  5. ARTZ [Concomitant]
     Active Substance: HYALURONATE SODIUM
     Dosage: 25 MG, 1X/DAY
     Route: 014
     Dates: start: 20200529, end: 20200605
  6. CELECOX [Suspect]
     Active Substance: CELECOXIB
     Indication: OSTEOARTHRITIS
     Dosage: 100 MG, 2X/DAY
     Route: 048
     Dates: start: 20200529, end: 20200605
  7. LOXONIN [Concomitant]
     Active Substance: LOXOPROFEN SODIUM
     Indication: PAIN
     Dosage: 100 MG, DAILY
     Route: 062
     Dates: start: 20200529, end: 20200529
  8. CELECOX [Suspect]
     Active Substance: CELECOXIB
     Indication: PAIN

REACTIONS (1)
  - Arthralgia [Unknown]

NARRATIVE: CASE EVENT DATE: 202006
